FAERS Safety Report 24194848 (Version 4)
Quarter: 2024Q3

REPORT INFORMATION
  Report Type: Report from Study
  Country: FR (occurrence: FR)
  Receive Date: 20240809
  Receipt Date: 20240913
  Transmission Date: 20241016
  Serious: Yes (Other)
  Sender: ALNYLAM PHARMACEUTICALS
  Company Number: FR-ALNYLAM PHARMACEUTICALS, INC.-ALN-2024-004393

PATIENT

DRUGS (1)
  1. ONPATTRO [Suspect]
     Active Substance: PATISIRAN SODIUM
     Indication: Product used for unknown indication
     Dosage: 2 MILLIGRAM PER MILLILITRE (300 UG/KG)
     Route: 065

REACTIONS (6)
  - Respiratory failure [Unknown]
  - Dyspnoea [Unknown]
  - Chest pain [Unknown]
  - Abdominal pain upper [Recovered/Resolved]
  - Hypoglycaemia [Unknown]
  - Presyncope [Unknown]
